FAERS Safety Report 15394660 (Version 2)
Quarter: 2022Q4

REPORT INFORMATION
  Report Type: Spontaneous
  Country: ES (occurrence: ES)
  Receive Date: 20180918
  Receipt Date: 20221021
  Transmission Date: 20230113
  Serious: Yes (Death, Hospitalization)
  Sender: FDA-Public Use
  Company Number: None

PATIENT
  Age: 92 Year
  Sex: Female

DRUGS (10)
  1. RAMIPRIL [Suspect]
     Active Substance: RAMIPRIL
     Dates: start: 20170611, end: 20170611
  2. SIMVASTATIN [Suspect]
     Active Substance: SIMVASTATIN
     Dates: start: 20170611, end: 20170611
  3. ACETAMINOPHEN [Suspect]
     Active Substance: ACETAMINOPHEN
     Dates: start: 20170611, end: 20170611
  4. PREGABALIN [Suspect]
     Active Substance: PREGABALIN
     Dates: start: 20170611, end: 20170611
  5. OMEPRAZOLE [Suspect]
     Active Substance: OMEPRAZOLE
     Dates: start: 20170611, end: 20170611
  6. OLANZAPINE [Suspect]
     Active Substance: OLANZAPINE
     Dates: start: 20170611, end: 20170611
  7. ALPRAZOLAM [Suspect]
     Active Substance: ALPRAZOLAM
     Dates: start: 20170611, end: 20170611
  8. CITALOPRAM [Suspect]
     Active Substance: CITALOPRAM HYDROBROMIDE
     Dates: start: 20170611, end: 20170611
  9. ZOLPIDEM [Suspect]
     Active Substance: ZOLPIDEM TARTRATE
     Dates: start: 20170611, end: 20170611
  10. METFORMIN [Suspect]
     Active Substance: METFORMIN HYDROCHLORIDE
     Dates: start: 20170611, end: 20170611

REACTIONS (2)
  - Intentional overdose [Fatal]
  - Suicide attempt [Unknown]

NARRATIVE: CASE EVENT DATE: 20170611
